FAERS Safety Report 4714832-3 (Version None)
Quarter: 2005Q3

REPORT INFORMATION
  Report Type: 
  Country: None (occurrence: None)
  Receive Date: 20050714
  Receipt Date: 20050714
  Transmission Date: 20060218
  Serious: Yes (Other)
  Sender: FDA-Public Use
  Company Number: None

PATIENT
  Sex: Male
  Weight: 92.7 kg

DRUGS (14)
  1. CYCLOPHOSPHAMIDE [Suspect]
     Indication: ACUTE LYMPHOCYTIC LEUKAEMIA
     Dosage: 1200 MG/M2 IV OVER 15-30 MIN ON DAY 1
     Route: 042
     Dates: start: 20050509
  2. DAUNORUBICIN HCL [Suspect]
     Dosage: 80 MG/M2/DAY X 3 DAYS IV ON DAYS 1,2,3
     Route: 042
  3. VINCRISTINE [Suspect]
     Dosage: SEE IMAGE
     Route: 042
  4. DEXAMETHASONE [Suspect]
     Dosage: 5 MG/M2 PO BID ON DAYS 1-7 AND 15-21
     Route: 048
  5. ELSPAR [Suspect]
     Dosage: 6000 U/M2 SC/IM ON DAYS 5,8,11,15,18,22
     Route: 058
  6. G-CSF [Suspect]
     Dosage: 5MCG/KG/DAY SC STARTING DAY 4 X 7 DAYS AND CONTINUING UNTIL ANC IS } 5000 MCL PRN
     Route: 058
  7. COTRIMOXAZOLE DS [Suspect]
     Dosage: SEE IMAGE
     Route: 048
  8. ALLOPURINOL [Suspect]
     Dosage: 300 MG PO QD ON DAYS 1-14
     Route: 048
  9. . [Concomitant]
  10. METHOTREXATE [Suspect]
     Dosage: SEE IMAGE
  11. MERCAPTOPURINE [Suspect]
     Dosage: 60 MG/M2/DAY PO ON DAYS 1-35
     Route: 048
  12. LEUCOVORIN [Suspect]
     Dosage: SEE IMAGE
  13. . [Concomitant]
  14. . [Concomitant]

REACTIONS (1)
  - STAPHYLOCOCCAL INFECTION [None]
